FAERS Safety Report 5847941-6 (Version None)
Quarter: 2008Q3

REPORT INFORMATION
  Report Type: 
  Country: None (occurrence: None)
  Receive Date: 20080818
  Receipt Date: 20080717
  Transmission Date: 20090109
  Serious: No
  Sender: FDA-Public Use
  Company Number: US-BAYER-200818831NA

PATIENT
  Age: 22 Year
  Sex: Female
  Weight: 52 kg

DRUGS (3)
  1. YAZ [Suspect]
     Indication: MENSTRUATION IRREGULAR
     Route: 048
     Dates: start: 20080201
  2. YAZ [Suspect]
     Route: 048
  3. LOESTRIN 1.5/30 [Concomitant]

REACTIONS (5)
  - FAECES PALE [None]
  - FLATULENCE [None]
  - FREQUENT BOWEL MOVEMENTS [None]
  - GASTROINTESTINAL DISORDER [None]
  - GASTROINTESTINAL PAIN [None]
